FAERS Safety Report 6141136-7 (Version None)
Quarter: 2009Q2

REPORT INFORMATION
  Report Type: 
  Country: None (occurrence: None)
  Receive Date: 20090402
  Receipt Date: 20090323
  Transmission Date: 20091009
  Serious: Yes (Hospitalization)
  Sender: FDA-Public Use
  Company Number: JP-ABBOTT-09P-087-0499876-00

PATIENT
  Age: 74 Year
  Sex: Male

DRUGS (4)
  1. LEUPLIN SR FOR INJECTION 11.25 MG [Suspect]
     Indication: PROSTATE CANCER STAGE IV
     Dates: start: 20070116, end: 20080826
  2. LEUPRORELIN ACETATE [Suspect]
     Indication: PROSTATE CANCER STAGE IV
     Dates: start: 20061219
  3. CASODEX [Concomitant]
     Indication: PROSTATE CANCER STAGE IV
     Route: 048
  4. YAKUBAN [Concomitant]
     Indication: SPINAL OSTEOARTHRITIS
     Dosage: OPTIMAL DOSE
     Route: 062
     Dates: start: 20070501, end: 20070530

REACTIONS (4)
  - CEREBELLAR INFARCTION [None]
  - INJECTION SITE ERYTHEMA [None]
  - INJECTION SITE INDURATION [None]
  - INJECTION SITE PAIN [None]
